FAERS Safety Report 15661904 (Version 2)
Quarter: 2018Q4

REPORT INFORMATION
  Report Type: Spontaneous
  Country: US (occurrence: US)
  Receive Date: 20181127
  Receipt Date: 20181205
  Transmission Date: 20190205
  Serious: Yes (Other)
  Sender: FDA-Public Use
  Company Number: US-MMM-WVGEN9U2

PATIENT
  Sex: Male

DRUGS (1)
  1. SUBLOCADE [Suspect]
     Active Substance: BUPRENORPHINE
     Indication: DRUG DEPENDENCE
     Dosage: 300 MG, QMO (2 INJECTIONS)
     Route: 065
     Dates: start: 201810, end: 20181117

REACTIONS (2)
  - Injection site necrosis [Recovered/Resolved]
  - Drug delivery system removal [Recovered/Resolved]

NARRATIVE: CASE EVENT DATE: 20181116
